FAERS Safety Report 6621170-0 (Version None)
Quarter: 2010Q1

REPORT INFORMATION
  Report Type: 
  Country: None (occurrence: None)
  Receive Date: 20100309
  Receipt Date: 20100222
  Transmission Date: 20100710
  Serious: No
  Sender: FDA-Public Use
  Company Number: US-BIOGENIDEC-2010BI005874

PATIENT
  Age: 44 Year
  Sex: Female

DRUGS (3)
  1. AVONEX [Suspect]
     Indication: MULTIPLE SCLEROSIS
     Route: 030
     Dates: start: 20010801, end: 20030830
  2. AVONEX [Suspect]
     Route: 030
     Dates: start: 20030830, end: 20081017
  3. AVONEX [Suspect]
     Route: 030
     Dates: start: 20090101

REACTIONS (5)
  - GLUCOSE TOLERANCE IMPAIRED [None]
  - MULTIPLE SCLEROSIS RELAPSE [None]
  - PAIN IN EXTREMITY [None]
  - PARAESTHESIA [None]
  - PRURITUS [None]
